FAERS Safety Report 17766659 (Version 1)
Quarter: 2020Q2

REPORT INFORMATION
  Report Type: Spontaneous
  Country: US (occurrence: US)
  Receive Date: 20200511
  Receipt Date: 20200511
  Transmission Date: 20200714
  Serious: No
  Sender: FDA-Public Use
  Company Number: US-BAUSCH-BL-2020-012509

PATIENT
  Age: 65 Year
  Sex: Male

DRUGS (1)
  1. JUBLIA [Suspect]
     Active Substance: EFINACONAZOLE
     Indication: PRODUCT USED FOR UNKNOWN INDICATION
     Dosage: 4 ML BOTTLES, ON HIS TOE ONCE A DAY ?START DATE: ABOUT 6 TO 8 YEARS
     Route: 061

REACTIONS (4)
  - Product dose omission [Unknown]
  - Nail discolouration [Unknown]
  - Product packaging quantity issue [Unknown]
  - Product use issue [Unknown]
